FAERS Safety Report 9635251 (Version 2)
Quarter: 2013Q4

REPORT INFORMATION
  Report Type: Spontaneous
  Country: US (occurrence: US)
  Receive Date: 20131021
  Receipt Date: 20131021
  Transmission Date: 20140711
  Serious: No
  Sender: FDA-Public Use
  Company Number: US-PURDUE-USA-2013-0102169

PATIENT
  Sex: Female

DRUGS (1)
  1. BUTRANS [Suspect]
     Indication: PRODUCT USED FOR UNKNOWN INDICATION
     Dosage: 10 MCG/HR, 1/WEEK
     Route: 062

REACTIONS (5)
  - Negative thoughts [Recovered/Resolved]
  - Pain [Unknown]
  - Unevaluable event [Unknown]
  - Drug ineffective [Unknown]
  - Crying [Unknown]
